FAERS Safety Report 9586016 (Version 1)
Quarter: 2013Q4

REPORT INFORMATION
  Report Type: Spontaneous
  Country: US (occurrence: None)
  Receive Date: 20131001
  Receipt Date: 20131001
  Transmission Date: 20140711
  Serious: Yes (Death, Hospitalization)
  Sender: FDA-Public Use
  Company Number: 2013AP008360

PATIENT
  Age: 24 Year
  Sex: Female

DRUGS (4)
  1. TRAZODONE [Suspect]
  2. CITALOPRAM HYDROBROMIDE [Suspect]
     Dosage: 1.8GMS.
  3. CLONAZEPAM [Suspect]
  4. BUPROPION HYDROCHLORIDE [Suspect]

REACTIONS (11)
  - Grand mal convulsion [None]
  - Depressed level of consciousness [None]
  - Miosis [None]
  - Peripheral coldness [None]
  - Flushing [None]
  - Overdose [None]
  - Cardiotoxicity [None]
  - Pupil fixed [None]
  - Myoclonus [None]
  - Ventricular fibrillation [None]
  - Hypotension [None]
